FAERS Safety Report 22135427 (Version 3)
Quarter: 2023Q4

REPORT INFORMATION
  Report Type: Spontaneous
  Country: ES (occurrence: ES)
  Receive Date: 20230324
  Receipt Date: 20231026
  Transmission Date: 20240110
  Serious: Yes (Hospitalization, Other)
  Sender: FDA-Public Use
  Company Number: US-Hikma Pharmaceuticals-US-H14001-23-00457

PATIENT
  Age: 65 Year
  Sex: Male

DRUGS (100)
  1. ETRUMADENANT [Suspect]
     Active Substance: ETRUMADENANT
     Dosage: 150 MILLIGRAM
     Route: 048
     Dates: start: 20220903, end: 20230929
  2. ETRUMADENANT [Suspect]
     Active Substance: ETRUMADENANT
     Dosage: 150 MILLIGRAM
     Route: 048
     Dates: start: 20220915, end: 20230929
  3. ETRUMADENANT [Suspect]
     Active Substance: ETRUMADENANT
     Dosage: 150 MILLIGRAM
     Route: 048
     Dates: start: 20221027
  4. ETRUMADENANT [Suspect]
     Active Substance: ETRUMADENANT
     Dosage: 150 MILLIGRAM
     Route: 048
     Dates: start: 20221204
  5. ETRUMADENANT [Suspect]
     Active Substance: ETRUMADENANT
     Dosage: 150 MILLIGRAM
     Route: 048
     Dates: start: 20221205, end: 20230122
  6. ETRUMADENANT [Suspect]
     Active Substance: ETRUMADENANT
     Dosage: 150 MILLIGRAM
     Route: 048
     Dates: start: 20221206, end: 20230122
  7. ETRUMADENANT [Suspect]
     Active Substance: ETRUMADENANT
     Dosage: 150 MILLIGRAM
     Route: 048
     Dates: start: 20221218, end: 20230122
  8. ETRUMADENANT [Suspect]
     Active Substance: ETRUMADENANT
     Dosage: 150 MILLIGRAM
     Route: 048
     Dates: start: 20230109, end: 20230122
  9. ETRUMADENANT [Suspect]
     Active Substance: ETRUMADENANT
     Dosage: 150 MILLIGRAM
     Route: 048
     Dates: start: 20230110, end: 20230122
  10. ETRUMADENANT [Suspect]
     Active Substance: ETRUMADENANT
     Dosage: 150 MILLIGRAM
     Route: 048
     Dates: start: 20230309, end: 20230406
  11. ETRUMADENANT [Suspect]
     Active Substance: ETRUMADENANT
     Dosage: 150 MILLIGRAM
     Route: 048
     Dates: start: 20230310, end: 20230406
  12. ETRUMADENANT [Suspect]
     Active Substance: ETRUMADENANT
     Dosage: 150 MILLIGRAM
     Route: 048
     Dates: start: 20230322, end: 20230406
  13. ETRUMADENANT [Suspect]
     Active Substance: ETRUMADENANT
     Dosage: 150 MILLIGRAM
     Route: 048
     Dates: start: 20230323, end: 20230406
  14. ETRUMADENANT [Suspect]
     Active Substance: ETRUMADENANT
     Dosage: 150 MILLIGRAM
     Route: 048
     Dates: start: 20230324, end: 20230406
  15. ETRUMADENANT [Suspect]
     Active Substance: ETRUMADENANT
     Dosage: 150 MILLIGRAM
     Route: 048
     Dates: start: 20230406
  16. ETRUMADENANT [Suspect]
     Active Substance: ETRUMADENANT
     Dosage: 150 MILLIGRAM
     Route: 048
     Dates: start: 20230410, end: 20230507
  17. ETRUMADENANT [Suspect]
     Active Substance: ETRUMADENANT
     Dosage: 150 MILLIGRAM
     Route: 048
     Dates: start: 20230411, end: 20230507
  18. ETRUMADENANT [Suspect]
     Active Substance: ETRUMADENANT
     Dosage: 150 MILLIGRAM
     Route: 048
     Dates: start: 20230423, end: 20230507
  19. ETRUMADENANT [Suspect]
     Active Substance: ETRUMADENANT
     Dosage: 150 MILLIGRAM
     Route: 048
     Dates: start: 20230424, end: 20230507
  20. ETRUMADENANT [Suspect]
     Active Substance: ETRUMADENANT
     Dosage: 150 MILLIGRAM
     Route: 048
     Dates: start: 20230425, end: 20230507
  21. ETRUMADENANT [Suspect]
     Active Substance: ETRUMADENANT
     Dosage: 150 MILLIGRAM
     Route: 048
     Dates: start: 20230507
  22. ETRUMADENANT [Suspect]
     Active Substance: ETRUMADENANT
     Dosage: 150 MILLIGRAM
     Route: 048
     Dates: start: 20230508, end: 20230604
  23. ETRUMADENANT [Suspect]
     Active Substance: ETRUMADENANT
     Dosage: 150 MILLIGRAM
     Route: 048
     Dates: start: 20230509, end: 20230604
  24. ETRUMADENANT [Suspect]
     Active Substance: ETRUMADENANT
     Dosage: 150 MILLIGRAM
     Route: 048
     Dates: start: 20230521, end: 20230604
  25. ETRUMADENANT [Suspect]
     Active Substance: ETRUMADENANT
     Dosage: 150 MILLIGRAM
     Route: 048
     Dates: start: 20230522, end: 20230604
  26. ETRUMADENANT [Suspect]
     Active Substance: ETRUMADENANT
     Dosage: 150 MILLIGRAM
     Route: 048
     Dates: start: 20230523, end: 20230604
  27. ETRUMADENANT [Suspect]
     Active Substance: ETRUMADENANT
     Dosage: 150 MILLIGRAM
     Route: 048
     Dates: start: 20230604
  28. ETRUMADENANT [Suspect]
     Active Substance: ETRUMADENANT
     Dosage: 150 MILLIGRAM
     Route: 048
     Dates: start: 20230711, end: 20230807
  29. ETRUMADENANT [Suspect]
     Active Substance: ETRUMADENANT
     Dosage: 150 MILLIGRAM
     Route: 048
     Dates: start: 20230802, end: 20230807
  30. ETRUMADENANT [Suspect]
     Active Substance: ETRUMADENANT
     Dosage: 150 MILLIGRAM
     Route: 048
     Dates: start: 20230808, end: 20230819
  31. ETRUMADENANT [Suspect]
     Active Substance: ETRUMADENANT
     Dosage: 150 MILLIGRAM
     Route: 048
     Dates: start: 20230808, end: 20230819
  32. ETRUMADENANT [Suspect]
     Active Substance: ETRUMADENANT
     Indication: Colorectal cancer
     Dosage: 450 MILLIGRAM
     Route: 048
     Dates: start: 20220905
  33. ETRUMADENANT [Suspect]
     Active Substance: ETRUMADENANT
     Dosage: 450 MILLIGRAM
     Route: 048
     Dates: start: 20221027
  34. BEVACIZUMAB [Suspect]
     Active Substance: BEVACIZUMAB
     Dosage: 325 MILLIGRAM
     Route: 042
     Dates: start: 20230309
  35. BEVACIZUMAB [Suspect]
     Active Substance: BEVACIZUMAB
     Dosage: 325 MILLIGRAM
     Route: 042
     Dates: start: 20230323
  36. BEVACIZUMAB [Suspect]
     Active Substance: BEVACIZUMAB
     Dosage: 325 MILLIGRAM
     Route: 042
     Dates: start: 20230410
  37. BEVACIZUMAB [Suspect]
     Active Substance: BEVACIZUMAB
     Dosage: 325 MILLIGRAM
     Route: 042
     Dates: start: 20230424
  38. BEVACIZUMAB [Suspect]
     Active Substance: BEVACIZUMAB
     Dosage: 325 MILLIGRAM
     Route: 042
     Dates: start: 20230508
  39. BEVACIZUMAB [Suspect]
     Active Substance: BEVACIZUMAB
     Dosage: 325 MILLIGRAM
     Route: 042
     Dates: start: 20230522
  40. BEVACIZUMAB [Suspect]
     Active Substance: BEVACIZUMAB
     Dosage: 325 MILLIGRAM
     Route: 042
     Dates: start: 20230606
  41. BEVACIZUMAB [Suspect]
     Active Substance: BEVACIZUMAB
     Dosage: 325 MILLIGRAM
     Route: 042
     Dates: start: 20230627
  42. BEVACIZUMAB [Suspect]
     Active Substance: BEVACIZUMAB
     Dosage: 325 MILLIGRAM
     Route: 042
     Dates: start: 20230711
  43. BEVACIZUMAB [Suspect]
     Active Substance: BEVACIZUMAB
     Dosage: 325 MILLIGRAM
     Route: 042
     Dates: start: 20230808
  44. BEVACIZUMAB [Suspect]
     Active Substance: BEVACIZUMAB
     Indication: Colorectal cancer
     Dosage: UNKNOWN
     Route: 065
     Dates: start: 20220930
  45. FLUOROURACIL [Suspect]
     Active Substance: FLUOROURACIL
     Dosage: 3187 MILLIGRAM
     Route: 042
     Dates: start: 20230724
  46. FLUOROURACIL [Suspect]
     Active Substance: FLUOROURACIL
     Dosage: 3187 MILLIGRAM
     Route: 042
     Dates: start: 20230808
  47. FLUOROURACIL [Suspect]
     Active Substance: FLUOROURACIL
     Dosage: 3302 MILLIGRAM
     Route: 042
     Dates: start: 20220930
  48. FLUOROURACIL [Suspect]
     Active Substance: FLUOROURACIL
     Dosage: 3302 MILLIGRAM
     Route: 042
     Dates: start: 20230223
  49. FLUOROURACIL [Suspect]
     Active Substance: FLUOROURACIL
     Dosage: 3302 MILLIGRAM
     Route: 042
     Dates: start: 20230309
  50. FLUOROURACIL [Suspect]
     Active Substance: FLUOROURACIL
     Dosage: 3302 MILLIGRAM
     Route: 042
     Dates: start: 20230323
  51. FLUOROURACIL [Suspect]
     Active Substance: FLUOROURACIL
     Dosage: 3302 MILLIGRAM
     Route: 042
     Dates: start: 20230410
  52. FLUOROURACIL [Suspect]
     Active Substance: FLUOROURACIL
     Dosage: 3302 MILLIGRAM
     Route: 042
     Dates: start: 20230424
  53. FLUOROURACIL [Suspect]
     Active Substance: FLUOROURACIL
     Dosage: 3302 MILLIGRAM
     Route: 042
     Dates: start: 20230508
  54. FLUOROURACIL [Suspect]
     Active Substance: FLUOROURACIL
     Dosage: 3302 MILLIGRAM
     Route: 042
     Dates: start: 20230522
  55. FLUOROURACIL [Suspect]
     Active Substance: FLUOROURACIL
     Dosage: 3302 MILLIGRAM
     Route: 042
     Dates: start: 20230606
  56. FLUOROURACIL [Suspect]
     Active Substance: FLUOROURACIL
     Dosage: 3302 MILLIGRAM
     Route: 042
     Dates: start: 20230627
  57. FLUOROURACIL [Suspect]
     Active Substance: FLUOROURACIL
     Dosage: 3302 MILLIGRAM
     Route: 042
     Dates: start: 20230711
  58. FLUOROURACIL [Suspect]
     Active Substance: FLUOROURACIL
     Dosage: 4128 MILLIGRAM
     Route: 042
     Dates: start: 20220902
  59. FLUOROURACIL [Suspect]
     Active Substance: FLUOROURACIL
     Dosage: 531 MILLIGRAM
     Route: 042
     Dates: start: 20230724
  60. FLUOROURACIL [Suspect]
     Active Substance: FLUOROURACIL
     Dosage: 531 MILLIGRAM
     Route: 042
     Dates: start: 20230808
  61. FLUOROURACIL [Suspect]
     Active Substance: FLUOROURACIL
     Dosage: 55 MILLIGRAM
     Route: 042
     Dates: start: 20220930
  62. FLUOROURACIL [Suspect]
     Active Substance: FLUOROURACIL
     Dosage: 550 MILLIGRAM
     Route: 042
     Dates: start: 20230223
  63. FLUOROURACIL [Suspect]
     Active Substance: FLUOROURACIL
     Dosage: 550 MILLIGRAM
     Route: 042
     Dates: start: 20230309
  64. FLUOROURACIL [Suspect]
     Active Substance: FLUOROURACIL
     Dosage: 550 MILLIGRAM
     Route: 042
     Dates: start: 20230323
  65. FLUOROURACIL [Suspect]
     Active Substance: FLUOROURACIL
     Dosage: 550 MILLIGRAM
     Route: 042
     Dates: start: 20230410
  66. FLUOROURACIL [Suspect]
     Active Substance: FLUOROURACIL
     Dosage: 550 MILLIGRAM
     Route: 042
     Dates: start: 20230424
  67. FLUOROURACIL [Suspect]
     Active Substance: FLUOROURACIL
     Dosage: 550 MILLIGRAM
     Route: 042
     Dates: start: 20230508
  68. FLUOROURACIL [Suspect]
     Active Substance: FLUOROURACIL
     Dosage: 550 MILLIGRAM
     Route: 042
     Dates: start: 20230522
  69. FLUOROURACIL [Suspect]
     Active Substance: FLUOROURACIL
     Dosage: 550 MILLIGRAM
     Route: 042
     Dates: start: 20230606
  70. FLUOROURACIL [Suspect]
     Active Substance: FLUOROURACIL
     Dosage: 550 MILLIGRAM
     Route: 042
     Dates: start: 20230627
  71. FLUOROURACIL [Suspect]
     Active Substance: FLUOROURACIL
     Dosage: 550 MILLIGRAM
     Route: 042
     Dates: start: 20230711
  72. FLUOROURACIL [Suspect]
     Active Substance: FLUOROURACIL
     Indication: Colorectal cancer
     Dosage: 688 MILLIGRAM
     Route: 042
     Dates: start: 20220902
  73. LEUCOVORIN [Suspect]
     Active Substance: LEUCOVORIN\LEUCOVORIN CALCIUM
     Indication: Colorectal cancer
     Dosage: 400 MILLIGRAM
     Route: 042
     Dates: start: 20220902
  74. LEUCOVORIN [Suspect]
     Active Substance: LEUCOVORIN\LEUCOVORIN CALCIUM
     Dosage: 400 MILLIGRAM
     Route: 042
     Dates: start: 20220930
  75. LEUCOVORIN [Suspect]
     Active Substance: LEUCOVORIN\LEUCOVORIN CALCIUM
     Dosage: 400 MILLIGRAM
     Route: 042
     Dates: start: 20230627
  76. LEUCOVORIN [Suspect]
     Active Substance: LEUCOVORIN\LEUCOVORIN CALCIUM
     Dosage: 400 MILLIGRAM
     Route: 042
     Dates: start: 20230711
  77. LEUCOVORIN [Suspect]
     Active Substance: LEUCOVORIN\LEUCOVORIN CALCIUM
     Dosage: 99 MILLIGRAM
     Route: 042
     Dates: start: 20230223
  78. LEUCOVORIN [Suspect]
     Active Substance: LEUCOVORIN\LEUCOVORIN CALCIUM
     Dosage: 99 MILLIGRAM
     Route: 042
     Dates: start: 20230309
  79. LEUCOVORIN [Suspect]
     Active Substance: LEUCOVORIN\LEUCOVORIN CALCIUM
     Dosage: 99 MILLIGRAM
     Route: 042
     Dates: start: 20230323
  80. LEUCOVORIN [Suspect]
     Active Substance: LEUCOVORIN\LEUCOVORIN CALCIUM
     Dosage: 99 MILLIGRAM
     Route: 042
     Dates: start: 20230410
  81. LEUCOVORIN [Suspect]
     Active Substance: LEUCOVORIN\LEUCOVORIN CALCIUM
     Dosage: 99 MILLIGRAM
     Route: 042
     Dates: start: 20230424
  82. LEUCOVORIN [Suspect]
     Active Substance: LEUCOVORIN\LEUCOVORIN CALCIUM
     Dosage: 99 MILLIGRAM
     Route: 042
     Dates: start: 20230508
  83. LEUCOVORIN [Suspect]
     Active Substance: LEUCOVORIN\LEUCOVORIN CALCIUM
     Dosage: 99 MILLIGRAM
     Route: 042
     Dates: start: 20230522
  84. LEUCOVORIN [Suspect]
     Active Substance: LEUCOVORIN\LEUCOVORIN CALCIUM
     Dosage: 99 MILLIGRAM
     Route: 042
     Dates: start: 20230606
  85. LEUCOVORIN [Suspect]
     Active Substance: LEUCOVORIN\LEUCOVORIN CALCIUM
     Dosage: 99 MILLIGRAM
     Route: 042
     Dates: start: 20230808
  86. OXALIPLATIN [Suspect]
     Active Substance: OXALIPLATIN
     Dosage: 112 MILLIGRAM
     Route: 042
     Dates: start: 20220930
  87. OXALIPLATIN [Suspect]
     Active Substance: OXALIPLATIN
     Indication: Colorectal cancer
     Dosage: 146 MILLIGRAM
     Route: 042
     Dates: start: 20220902
  88. ZIMBERELIMAB [Suspect]
     Active Substance: ZIMBERELIMAB
     Indication: Colorectal cancer
     Dosage: 400 MILLIGRAM
     Route: 042
     Dates: start: 20220902
  89. ZIMBERELIMAB [Suspect]
     Active Substance: ZIMBERELIMAB
     Dosage: 400 MILLIGRAM
     Route: 042
     Dates: start: 20220930
  90. ZIMBERELIMAB [Suspect]
     Active Substance: ZIMBERELIMAB
     Dosage: 480 MILLIGRAM
     Route: 042
     Dates: start: 20230410
  91. ZIMBERELIMAB [Suspect]
     Active Substance: ZIMBERELIMAB
     Dosage: 480 MILLIGRAM
     Route: 042
     Dates: start: 20230508
  92. ZIMBERELIMAB [Suspect]
     Active Substance: ZIMBERELIMAB
     Dosage: 480 MILLIGRAM
     Route: 042
     Dates: start: 20230606
  93. ZIMBERELIMAB [Suspect]
     Active Substance: ZIMBERELIMAB
     Dosage: 480 MILLIGRAM
     Route: 042
     Dates: start: 20230711
  94. ZIMBERELIMAB [Suspect]
     Active Substance: ZIMBERELIMAB
     Dosage: 480 MILLIGRAM
     Route: 042
     Dates: start: 20230808
  95. ATENOLOL [Concomitant]
     Active Substance: ATENOLOL
     Indication: Product used for unknown indication
     Dosage: UNKNOWN
     Route: 065
     Dates: start: 20220909
  96. CAPTOPIRIL [Concomitant]
     Indication: Product used for unknown indication
     Dosage: UNKNOWN
     Route: 065
     Dates: start: 20230123
  97. ENALAPRIL [Concomitant]
     Active Substance: ENALAPRIL
     Indication: Product used for unknown indication
     Dosage: UNKNOWN
     Route: 065
     Dates: start: 20220909
  98. CHLORTHALIDONE [Concomitant]
     Active Substance: CHLORTHALIDONE
     Indication: Product used for unknown indication
     Dosage: UNKNOWN
     Route: 065
     Dates: start: 20220909
  99. POLYETHYLENE GLYCOL 3350 [Concomitant]
     Active Substance: POLYETHYLENE GLYCOL 3350
     Indication: Product used for unknown indication
     Dosage: UNKNOWN
     Route: 065
     Dates: start: 20220909
  100. OMEPRAZOLE [Concomitant]
     Active Substance: OMEPRAZOLE
     Indication: Product used for unknown indication
     Dosage: UNKNOWN
     Route: 065
     Dates: start: 20221222

REACTIONS (7)
  - Neutropenia [Recovered/Resolved]
  - Pyrexia [Unknown]
  - Oropharyngeal pain [Unknown]
  - Asthenia [Unknown]
  - Rash [Unknown]
  - Respiratory tract infection [Unknown]
  - Respiratory syncytial virus test positive [Unknown]

NARRATIVE: CASE EVENT DATE: 20221028
